FAERS Safety Report 16643286 (Version 1)
Quarter: 2019Q3

REPORT INFORMATION
  Report Type: Spontaneous
  Country: ES (occurrence: ES)
  Receive Date: 20190729
  Receipt Date: 20190729
  Transmission Date: 20191004
  Serious: Yes (Hospitalization, Other)
  Sender: FDA-Public Use
  Company Number: ES-JNJFOC-20190725123

PATIENT
  Age: 56 Year
  Sex: Female

DRUGS (4)
  1. XEPLION [Suspect]
     Active Substance: PALIPERIDONE PALMITATE
     Indication: PRODUCT USED FOR UNKNOWN INDICATION
     Route: 030
  2. OLANZAPINE. [Suspect]
     Active Substance: OLANZAPINE
     Indication: PRODUCT USED FOR UNKNOWN INDICATION
     Route: 065
  3. OLANZAPINE. [Suspect]
     Active Substance: OLANZAPINE
     Route: 065
  4. OLANZAPINE. [Suspect]
     Active Substance: OLANZAPINE
     Route: 065

REACTIONS (24)
  - Hypoventilation [Unknown]
  - Gait inability [Recovering/Resolving]
  - Hypotension [Unknown]
  - Haematuria [Unknown]
  - Eye movement disorder [Recovering/Resolving]
  - Hypernatraemia [Unknown]
  - General physical health deterioration [Recovering/Resolving]
  - Renal impairment [Unknown]
  - Language disorder [Recovering/Resolving]
  - Tachypnoea [Unknown]
  - Neuroleptic malignant syndrome [Recovering/Resolving]
  - Seizure [Unknown]
  - Acute kidney injury [Unknown]
  - Bradyphrenia [Unknown]
  - Psychomotor skills impaired [Recovering/Resolving]
  - Pyuria [Unknown]
  - Alpha haemolytic streptococcal infection [Unknown]
  - Metabolic acidosis [Unknown]
  - Mucosal dryness [Unknown]
  - Encephalopathy [Recovering/Resolving]
  - Bacteriuria [Unknown]
  - Rhabdomyolysis [Unknown]
  - Tachycardia [Unknown]
  - Clonus [Recovering/Resolving]
